FAERS Safety Report 7518647-2 (Version None)
Quarter: 2011Q2

REPORT INFORMATION
  Report Type: 
  Country: None (occurrence: None)
  Receive Date: 20110512
  Receipt Date: 20110329
  Transmission Date: 20111010
  Serious: No
  Sender: FDA-Public Use
  Company Number: 1000019604

PATIENT
  Age: 83 Year
  Sex: Male

DRUGS (9)
  1. PREVACID (LANSOPRAZOLE) (LANSOPRAZOLE) [Concomitant]
  2. LORAZEPAM [Concomitant]
  3. SAVELLA [Suspect]
     Indication: BACK PAIN
     Dosage: SEE IMAGE
     Route: 048
     Dates: start: 20110309, end: 20110309
  4. SAVELLA [Suspect]
     Indication: BACK PAIN
     Dosage: SEE IMAGE
     Route: 048
     Dates: start: 20110312, end: 20110315
  5. SAVELLA [Suspect]
     Indication: BACK PAIN
     Dosage: SEE IMAGE
     Route: 048
     Dates: start: 20110310, end: 20110311
  6. SAVELLA [Suspect]
     Indication: BACK PAIN
     Dosage: SEE IMAGE
     Route: 048
     Dates: start: 20110316
  7. LYRICA [Suspect]
     Indication: BACK PAIN
     Dosage: ORAL
     Route: 048
     Dates: end: 20110324
  8. DIOVAN [Concomitant]
  9. SIMVASTATIN [Concomitant]

REACTIONS (4)
  - DRUG INTERACTION [None]
  - ABDOMINAL DISCOMFORT [None]
  - HEADACHE [None]
  - RASH [None]
